FAERS Safety Report 7074254-X (Version None)
Quarter: 2010Q4

REPORT INFORMATION
  Report Type: 
  Country: None (occurrence: None)
  Receive Date: 20101029
  Receipt Date: 20101015
  Transmission Date: 20110411
  Serious: Yes (Other)
  Sender: FDA-Public Use
  Company Number: BR-GENENTECH-308334

PATIENT
  Sex: Male
  Weight: 59 kg

DRUGS (32)
  1. PULMOZYME [Suspect]
     Indication: INCREASED BRONCHIAL SECRETION
     Dosage: UNK
     Route: 055
     Dates: start: 20000101
  2. KANAKION [Suspect]
     Indication: VITAMIN K DEFICIENCY
     Dosage: UNK
     Route: 030
     Dates: start: 20101014, end: 20101014
  3. KANAKION [Suspect]
     Dosage: UNK
     Route: 030
     Dates: start: 20020101
  4. KANAKION [Suspect]
     Dosage: UNK
     Route: 030
  5. TAMIFLU [Suspect]
     Indication: VIRAL INFECTION
     Dosage: 75 MG, UNK
     Route: 065
  6. NUTRISON [Concomitant]
     Indication: WEIGHT INCREASED
     Dosage: 1500 ML, UNK
  7. OMEGA-3-ACID ETHYL ESTERS [Concomitant]
     Indication: INFLAMMATION
     Dosage: 4000 MG, UNK
  8. CREON [Concomitant]
     Indication: PRODUCT USED FOR UNKNOWN INDICATION
     Dosage: 25000 IU, QAM
     Dates: start: 19900101
  9. CURCUMIN [Concomitant]
     Indication: PRODUCT USED FOR UNKNOWN INDICATION
     Dosage: 150 MG, UNK
  10. ASCORBIC ACID [Concomitant]
     Indication: PRODUCT USED FOR UNKNOWN INDICATION
     Dosage: 1000 MG, UNK
  11. VITAMIN A [Concomitant]
     Indication: PRODUCT USED FOR UNKNOWN INDICATION
     Dosage: 15 MG, UNK
  12. VITAMIN B3 [Concomitant]
     Indication: PRODUCT USED FOR UNKNOWN INDICATION
     Dosage: 60 MG, UNK
  13. VITAMIN B1 TAB [Concomitant]
     Indication: PRODUCT USED FOR UNKNOWN INDICATION
     Dosage: 60 MG, UNK
  14. VITAMIN B6 [Concomitant]
     Indication: PRODUCT USED FOR UNKNOWN INDICATION
     Dosage: 30 MG, UNK
  15. FOLIC ACID [Concomitant]
     Indication: PRODUCT USED FOR UNKNOWN INDICATION
     Dosage: 1000 A?G, UNK
  16. CHELATED MAGNESIUM [Concomitant]
     Indication: PRODUCT USED FOR UNKNOWN INDICATION
     Dosage: 100 MG, UNK
  17. CHELATED MAGNESIUM [Concomitant]
     Dosage: 2 MG, UNK
  18. SELENIUM [Concomitant]
     Indication: PRODUCT USED FOR UNKNOWN INDICATION
     Dosage: 150 A?G, UNK
  19. IODINE [Concomitant]
     Indication: PRODUCT USED FOR UNKNOWN INDICATION
     Dosage: 100 A?G, UNK
  20. ALPHA-LIPOIC ACID [Concomitant]
     Indication: PRODUCT USED FOR UNKNOWN INDICATION
     Dosage: 60 MG, UNK
  21. CALCIUM [Concomitant]
     Indication: PRODUCT USED FOR UNKNOWN INDICATION
     Dosage: 100 MG, UNK
  22. PHOSPHATIDYLSERINE [Concomitant]
     Indication: PRODUCT USED FOR UNKNOWN INDICATION
     Dosage: 100 MG, UNK
  23. VITAMIN E [Concomitant]
     Indication: PRODUCT USED FOR UNKNOWN INDICATION
     Dosage: 100 IU, UNK
  24. VITAMIN K TAB [Concomitant]
     Indication: PRODUCT USED FOR UNKNOWN INDICATION
     Dosage: UNK
  25. VITAMIN B-12 [Concomitant]
     Indication: PRODUCT USED FOR UNKNOWN INDICATION
     Dosage: 5 MG, UNK
  26. VITAMIN B5 [Concomitant]
     Indication: PRODUCT USED FOR UNKNOWN INDICATION
     Dosage: 100 MG, UNK
  27. VITAMIN B-12 [Concomitant]
     Indication: PRODUCT USED FOR UNKNOWN INDICATION
     Dosage: 100 A?G, UNK
  28. ZINC [Concomitant]
     Indication: PRODUCT USED FOR UNKNOWN INDICATION
     Dosage: 30 MG, UNK
  29. L-CARNITINE [Concomitant]
     Indication: PRODUCT USED FOR UNKNOWN INDICATION
     Dosage: 700 MG, UNK
  30. ACETYLCYSTEINE [Concomitant]
     Indication: PRODUCT USED FOR UNKNOWN INDICATION
     Dosage: 900 MG, UNK
  31. EQUISETUM [Concomitant]
     Indication: PRODUCT USED FOR UNKNOWN INDICATION
     Dosage: DRUG: EQUICETUM
  32. CIPROMAX [Concomitant]
     Indication: CYSTIC FIBROSIS
     Dosage: 500 MG, UNK

REACTIONS (7)
  - COUGH [None]
  - DRUG ADMINISTRATION ERROR [None]
  - NASAL CONGESTION [None]
  - PSEUDOMONAS INFECTION [None]
  - RESPIRATORY DISORDER [None]
  - VIRAL INFECTION [None]
  - WEIGHT DECREASED [None]
